FAERS Safety Report 17048144 (Version 1)
Quarter: 2019Q4

REPORT INFORMATION
  Report Type: Spontaneous
  Country: US (occurrence: US)
  Receive Date: 20191119
  Receipt Date: 20191119
  Transmission Date: 20200122
  Serious: No
  Sender: FDA-Public Use
  Company Number: US-PFIZER INC-2019494007

PATIENT
  Sex: Male

DRUGS (1)
  1. ZITHROMAX [Suspect]
     Active Substance: AZITHROMYCIN DIHYDRATE
     Indication: LYME DISEASE
     Dosage: 250 ML, UNK
     Route: 042

REACTIONS (4)
  - Visual impairment [Recovered/Resolved]
  - Off label use [Unknown]
  - Aura [Recovered/Resolved]
  - Product use in unapproved indication [Unknown]
